FAERS Safety Report 4616829-0 (Version None)
Quarter: 2005Q1

REPORT INFORMATION
  Report Type: 
  Country: None (occurrence: None)
  Receive Date: 20050321
  Receipt Date: 20050304
  Transmission Date: 20050727
  Serious: Yes (Death)
  Sender: FDA-Public Use
  Company Number: 8008829

PATIENT

DRUGS (13)
  1. KEPPRA [Suspect]
     Indication: EPILEPSY
     Dosage: 1 G 2/D TRP
     Route: 064
     Dates: start: 20041220, end: 20050111
  2. RIVOTRIL [Suspect]
     Indication: EPILEPSY
     Dosage: 1 DF 1/D TRP
     Route: 064
     Dates: start: 20040730, end: 20050114
  3. SEPECIAFOLDINE [Suspect]
     Dosage: TRP
     Route: 064
     Dates: end: 20050114
  4. TEGRETOL [Suspect]
     Indication: EPILEPSY
     Dosage: 1000 MG/D TRP
     Dates: start: 20040730, end: 20050110
  5. DI-HYDAN [Suspect]
     Indication: EPILEPSY
     Dosage: 300 MG /D TRP
     Route: 064
     Dates: start: 20040730, end: 20050114
  6. PRODILANTIN [Concomitant]
     Route: 064
  7. GADOLINIUM [Concomitant]
     Route: 064
  8. DILANTIN [Concomitant]
     Route: 064
  9. NESDONAL [Concomitant]
     Route: 064
  10. XYLOCAINE [Concomitant]
     Route: 064
  11. ORBENINE [Concomitant]
     Route: 064
  12. GENTALLINE [Concomitant]
     Route: 064
  13. DEPAKENE [Concomitant]
     Route: 064

REACTIONS (3)
  - DRUG EXPOSURE DURING PREGNANCY [None]
  - FACIAL DYSMORPHISM [None]
  - INTRA-UTERINE DEATH [None]
